FAERS Safety Report 7785226-1 (Version None)
Quarter: 2011Q3

REPORT INFORMATION
  Report Type: 
  Country: None (occurrence: None)
  Receive Date: 20110929
  Receipt Date: 20110926
  Transmission Date: 20111222
  Serious: Yes (Hospitalization, Other)
  Sender: FDA-Public Use
  Company Number: US-TEVA-302564USA

PATIENT
  Age: 28 Year
  Sex: Female

DRUGS (1)
  1. VENLAFAXINE HYDROCHLORIDE [Suspect]

REACTIONS (4)
  - BEZOAR [None]
  - INTESTINAL OBSTRUCTION [None]
  - OVERDOSE [None]
  - INTESTINAL ISCHAEMIA [None]
